FAERS Safety Report 12075121 (Version 1)
Quarter: 2016Q1

REPORT INFORMATION
  Report Type: Not Available
  Country: None (occurrence: US)
  Receive Date: 20160212
  Receipt Date: 20160212
  Transmission Date: 20160608
  Serious: No
  Sender: FDA-Public Use
  Company Number: US-AKORN-11420

PATIENT
  Age: 75 Year
  Sex: Female

DRUGS (1)
  1. COSOPT PF [Suspect]
     Active Substance: DORZOLAMIDE HYDROCHLORIDE\TIMOLOL MALEATE

REACTIONS (3)
  - Lacrimation increased [None]
  - Eye irritation [None]
  - Rhinorrhoea [None]
